FAERS Safety Report 11102367 (Version 1)
Quarter: 2015Q2

REPORT INFORMATION
  Report Type: Spontaneous
  Country: TR (occurrence: TR)
  Receive Date: 20150511
  Receipt Date: 20150511
  Transmission Date: 20150821
  Serious: Yes (Other)
  Sender: FDA-Public Use
  Company Number: TR-SA-2015SA061040

PATIENT
  Age: 33 Year
  Sex: Female

DRUGS (1)
  1. CLOMIFENE CITRATE [Suspect]
     Active Substance: CLOMIPHENE
     Indication: INFERTILITY
     Dosage: 5 DAYS PER CYCLE
     Route: 065

REACTIONS (6)
  - Retinal pigment epitheliopathy [Not Recovered/Not Resolved]
  - Maculopathy [Not Recovered/Not Resolved]
  - Visual impairment [Not Recovered/Not Resolved]
  - Headache [Recovered/Resolved]
  - Macular degeneration [Not Recovered/Not Resolved]
  - Visual acuity reduced [Not Recovered/Not Resolved]
